FAERS Safety Report 6306493-7 (Version None)
Quarter: 2009Q3

REPORT INFORMATION
  Report Type: 
  Country: None (occurrence: None)
  Receive Date: 20090811
  Receipt Date: 20090811
  Transmission Date: 20100115
  Serious: No
  Sender: FDA-Public Use
  Company Number: None

PATIENT
  Sex: Female

DRUGS (1)
  1. SANDOSTATIN LAR [Suspect]
     Indication: PANCREATITIS
     Dosage: 30MG Q3WEEKS IM
     Route: 030
     Dates: start: 20060301, end: 20090801

REACTIONS (5)
  - GASTROINTESTINAL HYPERMOTILITY [None]
  - MENTAL STATUS CHANGES [None]
  - OESOPHAGEAL PAIN [None]
  - PANCREATITIS [None]
  - UNEVALUABLE EVENT [None]
